FAERS Safety Report 12548082 (Version 1)
Quarter: 2016Q3

REPORT INFORMATION
  Report Type: Spontaneous
  Country: PL (occurrence: PL)
  Receive Date: 20160712
  Receipt Date: 20160712
  Transmission Date: 20161109
  Serious: Yes (Other)
  Sender: FDA-Public Use
  Company Number: PHHY2016PL092588

PATIENT
  Sex: Female

DRUGS (3)
  1. AFINITOR [Suspect]
     Active Substance: EVEROLIMUS
     Indication: PANCREATIC NEUROENDOCRINE TUMOUR
     Dosage: 10 MG, UNK
     Route: 065
     Dates: start: 201304
  2. AFINITOR [Suspect]
     Active Substance: EVEROLIMUS
     Dosage: 5 MG, UNK
     Route: 065
  3. AFINITOR [Suspect]
     Active Substance: EVEROLIMUS
     Dosage: 10 MG, UNK
     Route: 065

REACTIONS (19)
  - Vomiting [Unknown]
  - Malignant neoplasm progression [Unknown]
  - Abdominal pain [Unknown]
  - Cough [Unknown]
  - Blood cholesterol increased [Unknown]
  - Biliary dilatation [Unknown]
  - Pneumonia streptococcal [Recovering/Resolving]
  - Pneumonitis [Recovering/Resolving]
  - Nausea [Unknown]
  - Rales [Unknown]
  - Blood cholesterol increased [Recovered/Resolved]
  - Asthenia [Unknown]
  - Mucosal discolouration [Unknown]
  - General physical health deterioration [Unknown]
  - Blood triglycerides increased [Recovered/Resolved]
  - Yellow skin [Unknown]
  - Blood triglycerides increased [Unknown]
  - Cholangitis [Recovering/Resolving]
  - Productive cough [Unknown]

NARRATIVE: CASE EVENT DATE: 201309
